FAERS Safety Report 22966179 (Version 2)
Quarter: 2023Q4

REPORT INFORMATION
  Report Type: Report from Study
  Country: CH (occurrence: CH)
  Receive Date: 20230921
  Receipt Date: 20231016
  Transmission Date: 20240110
  Serious: Yes (Other)
  Sender: FDA-Public Use
  Company Number: CH-002147023-NVSC2023CH001761

PATIENT
  Sex: Female
  Weight: 65 kg

DRUGS (3)
  1. KESIMPTA [Suspect]
     Active Substance: OFATUMUMAB
     Indication: Multiple sclerosis
     Dosage: 20 MG, QMO (TITRATION ACCORDING TO TECHNICAL INFORMATION)
     Route: 058
     Dates: start: 20221230
  2. KESIMPTA [Suspect]
     Active Substance: OFATUMUMAB
     Dosage: 20 MG, QMO
     Route: 058
  3. KESIMPTA [Suspect]
     Active Substance: OFATUMUMAB
     Dosage: 20 MG, Q4W
     Route: 058
     Dates: start: 202306

REACTIONS (8)
  - Cystitis [Recovering/Resolving]
  - Pyelonephritis [Recovering/Resolving]
  - Flank pain [Recovered/Resolved]
  - Multiple sclerosis pseudo relapse [Recovering/Resolving]
  - Paralysis [Recovering/Resolving]
  - Asthenia [Recovering/Resolving]
  - Pain in extremity [Recovered/Resolved]
  - Chills [Recovered/Resolved]

NARRATIVE: CASE EVENT DATE: 20221230
